FAERS Safety Report 4335368-8 (Version None)
Quarter: 2004Q2

REPORT INFORMATION
  Report Type: 
  Country: None (occurrence: None)
  Receive Date: 20040408
  Receipt Date: 20040408
  Transmission Date: 20050107
  Serious: Yes (Other)
  Sender: FDA-Public Use
  Company Number: None

PATIENT
  Sex: Female
  Weight: 70.7611 kg

DRUGS (1)
  1. ENALAPRIL [Suspect]
     Indication: HYPERTENSION

REACTIONS (1)
  - PHARMACEUTICAL PRODUCT COMPLAINT [None]
